FAERS Safety Report 16973120 (Version 1)
Quarter: 2019Q4

REPORT INFORMATION
  Report Type: Spontaneous
  Country: US (occurrence: US)
  Receive Date: 20191030
  Receipt Date: 20191030
  Transmission Date: 20200122
  Serious: No
  Sender: FDA-Public Use
  Company Number: US-TEVA-2019-US-1129096

PATIENT
  Age: 68 Year
  Sex: Male

DRUGS (3)
  1. CLONAZEPAM TEVA [Suspect]
     Active Substance: CLONAZEPAM
     Indication: NERVOUSNESS
  2. CLONAZEPAM TEVA [Suspect]
     Active Substance: CLONAZEPAM
     Indication: PAIN
  3. CLONAZEPAM TEVA [Suspect]
     Active Substance: CLONAZEPAM
     Indication: DEPRESSION
     Dosage: DOSE STRENGTH: 1
     Route: 065

REACTIONS (3)
  - Product substitution issue [Unknown]
  - Pruritus [Unknown]
  - Pain [Unknown]
